FAERS Safety Report 26181128 (Version 1)
Quarter: 2025Q4

REPORT INFORMATION
  Report Type: Report from Study
  Country: MX (occurrence: MX)
  Receive Date: 20251221
  Receipt Date: 20251221
  Transmission Date: 20260118
  Serious: Yes (Other)
  Sender: TAKEDA
  Company Number: MX-TAKEDA-2025TUS111173

PATIENT
  Age: 25 Year
  Sex: Male

DRUGS (4)
  1. VEDOLIZUMAB [Suspect]
     Active Substance: VEDOLIZUMAB
     Indication: Colitis ulcerative
     Dosage: 300 MILLIGRAM
  2. MESALAMINE [Suspect]
     Active Substance: MESALAMINE
     Indication: Product used for unknown indication
     Dosage: UNK
  3. PREDNISONE [Suspect]
     Active Substance: PREDNISONE
     Indication: Product used for unknown indication
     Dosage: 15 MILLIGRAM
  4. TOFACITINIB [Suspect]
     Active Substance: TOFACITINIB
     Indication: Product used for unknown indication
     Dosage: UNK

REACTIONS (4)
  - Haematochezia [Not Recovered/Not Resolved]
  - Product dose omission issue [Recovered/Resolved]
  - Product availability issue [Recovered/Resolved]
  - Mucous stools [Not Recovered/Not Resolved]

NARRATIVE: CASE EVENT DATE: 20251108
